FAERS Safety Report 24448745 (Version 1)
Quarter: 2024Q4

REPORT INFORMATION
  Report Type: Spontaneous
  Country: US (occurrence: US)
  Receive Date: 20241017
  Receipt Date: 20241017
  Transmission Date: 20250114
  Serious: No
  Sender: BRISTOL-MYERS SQUIBB COMPANY
  Company Number: US-BRISTOL-MYERS SQUIBB COMPANY-2024-162847

PATIENT
  Age: 60 Year
  Sex: Male
  Weight: 105.78 kg

DRUGS (1)
  1. REVLIMID [Suspect]
     Active Substance: LENALIDOMIDE
     Indication: Plasma cell myeloma
     Dates: start: 20190523

REACTIONS (2)
  - Diarrhoea [Unknown]
  - Obesity [Unknown]

NARRATIVE: CASE EVENT DATE: 20240808
